FAERS Safety Report 14391251 (Version 1)
Quarter: 2018Q1

REPORT INFORMATION
  Report Type: Spontaneous
  Country: PT (occurrence: PT)
  Receive Date: 20180116
  Receipt Date: 20180116
  Transmission Date: 20180509
  Serious: Yes (Other)
  Sender: FDA-Public Use
  Company Number: PT-009507513-1801PRT004004

PATIENT
  Age: 65 Year
  Sex: Female

DRUGS (1)
  1. ATOZET [Suspect]
     Active Substance: ATORVASTATIN CALCIUM\EZETIMIBE
     Indication: BLOOD CHOLESTEROL INCREASED
     Dosage: 10MG+20MG
     Route: 048

REACTIONS (3)
  - Tendon disorder [Recovering/Resolving]
  - Myalgia [Recovering/Resolving]
  - Movement disorder [Recovering/Resolving]
